FAERS Safety Report 18728476 (Version 1)
Quarter: 2021Q1

REPORT INFORMATION
  Report Type: Spontaneous
  Country: US (occurrence: US)
  Receive Date: 20210112
  Receipt Date: 20210112
  Transmission Date: 20210419
  Serious: Yes (Hospitalization, Other)
  Sender: FDA-Public Use
  Company Number: US-HIKMA PHARMACEUTICALS USA INC.-US-H14001-21-53270

PATIENT
  Age: 56 Year
  Sex: Female

DRUGS (3)
  1. IFOSFAMIDE. [Suspect]
     Active Substance: IFOSFAMIDE
     Indication: ENDOMETRIAL STROMAL SARCOMA
     Dosage: CYCLICAL
     Route: 065
     Dates: start: 201904, end: 2019
  2. MESNA. [Suspect]
     Active Substance: MESNA
     Indication: ENDOMETRIAL STROMAL SARCOMA
     Dosage: CYCLICAL
     Route: 065
     Dates: start: 201904, end: 2019
  3. DOXORUBICIN [Suspect]
     Active Substance: DOXORUBICIN
     Indication: ENDOMETRIAL STROMAL SARCOMA
     Dosage: CYCLICAL
     Route: 065
     Dates: start: 201904, end: 2019

REACTIONS (2)
  - Pneumothorax [Recovered/Resolved]
  - Encephalopathy [Unknown]

NARRATIVE: CASE EVENT DATE: 2019
